FAERS Safety Report 4746335-4 (Version None)
Quarter: 2005Q3

REPORT INFORMATION
  Report Type: 
  Country: None (occurrence: None)
  Receive Date: 20050815
  Receipt Date: 20050811
  Transmission Date: 20060218
  Serious: Yes (Hospitalization)
  Sender: FDA-Public Use
  Company Number: J081-002-002037

PATIENT
  Age: 74 Year
  Sex: Female

DRUGS (11)
  1. ARICEPT [Suspect]
     Indication: DEMENTIA ALZHEIMER'S TYPE
     Dosage: 3 MG, 1 IN 1 D, ORAL
     Route: 048
     Dates: start: 20041111, end: 20041115
  2. NITROL R (GLYCERYL TRINITRATE) [Concomitant]
  3. SUNRYTHM (PILSICANIDE HYDROCHLORIDE) [Concomitant]
  4. NU-LOTAN (LOSARATAN POTASSIUM) [Concomitant]
  5. LIPITOR [Concomitant]
  6. SAIBOUKU-TO (SAIBOKU-TO) [Concomitant]
  7. MAGLAX (MAG-LAX) [Concomitant]
  8. YODEL  S (SENNA) [Concomitant]
  9. SINGULAIR [Concomitant]
  10. LENDORM [Concomitant]
  11. FLUTIDE-DISKUS (FLUTICASONE PROPIONATE) [Concomitant]

REACTIONS (3)
  - ASTHMA [None]
  - CONDITION AGGRAVATED [None]
  - TREATMENT NONCOMPLIANCE [None]
